FAERS Safety Report 8037795-4 (Version None)
Quarter: 2012Q1

REPORT INFORMATION
  Report Type: 
  Country: None (occurrence: None)
  Receive Date: 20120111
  Receipt Date: 20120105
  Transmission Date: 20120608
  Serious: Yes (Other)
  Sender: FDA-Public Use
  Company Number: US-ABBOTT-12P-163-0889901-00

PATIENT
  Age: 47 Year
  Sex: Female

DRUGS (4)
  1. LIALDA [Concomitant]
     Indication: PRODUCT USED FOR UNKNOWN INDICATION
  2. SYNTHROID [Concomitant]
     Indication: PRODUCT USED FOR UNKNOWN INDICATION
     Dosage: DAILY
  3. PLAQUENIL [Concomitant]
     Indication: PRODUCT USED FOR UNKNOWN INDICATION
     Dosage: DAILY
  4. HUMIRA [Suspect]
     Indication: CROHN'S DISEASE
     Dates: start: 20110428

REACTIONS (11)
  - INJECTION SITE SWELLING [None]
  - INJECTION SITE PAIN [None]
  - SYSTEMIC LUPUS ERYTHEMATOSUS [None]
  - CONFUSIONAL STATE [None]
  - INCORRECT ROUTE OF DRUG ADMINISTRATION [None]
  - WRONG TECHNIQUE IN DRUG USAGE PROCESS [None]
  - PAIN IN EXTREMITY [None]
  - JOINT SWELLING [None]
  - INJECTION SITE DISCOLOURATION [None]
  - AMNESIA [None]
  - INCORRECT DOSE ADMINISTERED [None]
